FAERS Safety Report 5364891-2 (Version None)
Quarter: 2007Q2

REPORT INFORMATION
  Report Type: 
  Country: None (occurrence: None)
  Receive Date: 20070621
  Receipt Date: 20070612
  Transmission Date: 20071010
  Serious: Yes (Disabling)
  Sender: FDA-Public Use
  Company Number: JP-NOVOPROD-264492

PATIENT
  Age: 75 Year
  Sex: Male
  Weight: 60 kg

DRUGS (8)
  1. NOVORAPID 30 MIX CHU [Suspect]
     Indication: INSULIN-REQUIRING TYPE II DIABETES MELLITUS
     Dosage: 10 IU, QD
     Route: 058
     Dates: start: 20070326, end: 20070611
  2. DAONIL [Concomitant]
     Dosage: 5 MG, QD
     Route: 048
     Dates: start: 19931029, end: 20070423
  3. METFORMIN HCL [Concomitant]
     Dosage: 500 MG, QD
     Route: 048
     Dates: start: 20051107, end: 20070611
  4. BASEN [Concomitant]
     Dosage: .6 MG, QD
     Route: 048
     Dates: start: 20030926, end: 20070611
  5. ADALAT [Concomitant]
     Dosage: 20 MG, QD
     Route: 048
     Dates: start: 20050117
  6. MICARDIS [Concomitant]
     Dosage: 40 MG, QD
     Route: 048
     Dates: start: 20040501
  7. ZYLORIC                            /00003301/ [Concomitant]
     Dosage: 20 MG, QD
     Route: 048
     Dates: start: 20001006
  8. ZANTAC [Concomitant]
     Dosage: 300 MG, QD
     Route: 048
     Dates: start: 20030117

REACTIONS (1)
  - HEPATIC FUNCTION ABNORMAL [None]
